FAERS Safety Report 8018074-8 (Version None)
Quarter: 2012Q1

REPORT INFORMATION
  Report Type: 
  Country: None (occurrence: None)
  Receive Date: 20120103
  Receipt Date: 20111226
  Transmission Date: 20120608
  Serious: Yes (Hospitalization)
  Sender: FDA-Public Use
  Company Number: ES-JNJFOC-20111210751

PATIENT
  Age: 16 Year
  Sex: Male

DRUGS (2)
  1. PALIPERIDONE [Suspect]
     Indication: CONDUCT DISORDER
     Route: 030
     Dates: start: 20111201
  2. OXCARBAZEPINE [Concomitant]
     Indication: CONDUCT DISORDER
     Route: 065

REACTIONS (3)
  - PYREXIA [None]
  - DRUG ADMINISTERED TO PATIENT OF INAPPROPRIATE AGE [None]
  - INJECTION SITE CYST [None]
